FAERS Safety Report 18998191 (Version 4)
Quarter: 2021Q2

REPORT INFORMATION
  Report Type: Spontaneous
  Country: US (occurrence: US)
  Receive Date: 20210311
  Receipt Date: 20210629
  Transmission Date: 20210717
  Serious: Yes (Hospitalization)
  Sender: FDA-Public Use
  Company Number: US-PFIZER INC-2021185399

PATIENT
  Age: 68 Year
  Sex: Female

DRUGS (2)
  1. IBRANCE [Suspect]
     Active Substance: PALBOCICLIB
     Dosage: 100 MG
  2. IBRANCE [Suspect]
     Active Substance: PALBOCICLIB
     Indication: BREAST CANCER FEMALE
     Dosage: 100 MG, DAILY FOR 21 DAYS ON, 7 DAYS OFF ON A 28 DAY CYCLE
     Dates: start: 202101

REACTIONS (3)
  - Abdominal pain upper [Unknown]
  - Intentional dose omission [Unknown]
  - Product dose omission in error [Unknown]

NARRATIVE: CASE EVENT DATE: 202101
